FAERS Safety Report 8344040 (Version 4)
Quarter: 2018Q2

REPORT INFORMATION
  Report Type: Spontaneous
  Country: US (occurrence: US)
  Receive Date: 20120119
  Receipt Date: 20180404
  Transmission Date: 20180711
  Serious: Yes (Death, Other)
  Sender: FDA-Public Use
  Company Number: US-PFIZER INC-2012010748

PATIENT
  Sex: Female

DRUGS (1)
  1. TORISEL [Suspect]
     Active Substance: TEMSIROLIMUS
     Indication: RENAL CELL CARCINOMA STAGE IV
     Dosage: UNK

REACTIONS (5)
  - Neoplasm progression [Fatal]
  - Kidney infection [Unknown]
  - Cough [Unknown]
  - Transient ischaemic attack [Unknown]
  - Pericardial effusion [Unknown]
